FAERS Safety Report 5231434-3 (Version None)
Quarter: 2007Q1

REPORT INFORMATION
  Report Type: 
  Country: None (occurrence: None)
  Receive Date: 20070202
  Receipt Date: 20070126
  Transmission Date: 20070707
  Serious: Yes (Hospitalization, Disabling)
  Sender: FDA-Public Use
  Company Number: 163-20785-06060246

PATIENT
  Age: 74 Year
  Sex: Male

DRUGS (9)
  1. THALOMID [Suspect]
     Indication: MULTIPLE MYELOMA
     Dosage: 200 MG, 4 IN 1 D, ORAL
     Route: 048
     Dates: start: 20050103, end: 20060501
  2. DECADRON [Suspect]
     Indication: MULTIPLE MYELOMA
     Dosage: 200 MG, 4 IN 1 D, ORAL
     Route: 048
     Dates: start: 20050103, end: 20060501
  3. BALDEX [Concomitant]
  4. PROCRIT [Concomitant]
  5. DILTIAZEM [Concomitant]
  6. PRAVACHOL [Concomitant]
  7. PRILOSEC [Concomitant]
  8. TOPROL-XL [Concomitant]
  9. COUMADIN [Concomitant]

REACTIONS (13)
  - ALOPECIA [None]
  - ATRIAL FIBRILLATION [None]
  - BLOOD UREA INCREASED [None]
  - DIARRHOEA [None]
  - DRUG TOXICITY [None]
  - DYSPNOEA [None]
  - FATIGUE [None]
  - GAIT DISTURBANCE [None]
  - HAEMOGLOBIN DECREASED [None]
  - MUSCLE ATROPHY [None]
  - NEUROPATHY [None]
  - PNEUMONIA [None]
  - PROTEIN URINE [None]
